FAERS Safety Report 9669916 (Version 3)
Quarter: 2014Q1

REPORT INFORMATION
  Report Type: Report from Study
  Country: US (occurrence: US)
  Receive Date: 20131105
  Receipt Date: 20140214
  Transmission Date: 20141002
  Serious: Yes (Other)
  Sender: FDA-Public Use
  Company Number: US-PURDUE-USA-2013-0108080

PATIENT
  Sex: Female
  Weight: 140 kg

DRUGS (1)
  1. OXY CR TAB [Suspect]
     Indication: PRODUCT USED FOR UNKNOWN INDICATION
     Dosage: 80 MG, BID
     Route: 048
     Dates: start: 20130929

REACTIONS (3)
  - Gangrene [Unknown]
  - Diabetic ulcer [Unknown]
  - Diabetes mellitus inadequate control [Unknown]
